FAERS Safety Report 13538159 (Version 1)
Quarter: 2017Q2

REPORT INFORMATION
  Report Type: Report from Study
  Country: None (occurrence: TR)
  Receive Date: 20170512
  Receipt Date: 20170512
  Transmission Date: 20170830
  Serious: Yes (Hospitalization)
  Sender: FDA-Public Use
  Company Number: TR-ABBVIE-17K-161-1970833-00

PATIENT
  Age: 62 Year
  Sex: Male
  Weight: 54 kg

DRUGS (1)
  1. DUODOPA [Suspect]
     Active Substance: CARBIDOPA\LEVODOPA
     Indication: PARKINSON^S DISEASE
     Dosage: MORNING DOSE: 8.50 ML??CONTINUOUS DOSE: 5.90 ML??EXTRA DOSE: 2.00 ML
     Route: 050
     Dates: start: 20150508

REACTIONS (1)
  - Laceration [Not Recovered/Not Resolved]

NARRATIVE: CASE EVENT DATE: 20170509
